FAERS Safety Report 8596081 (Version 2)
Quarter: 2014Q1

REPORT INFORMATION
  Report Type: Spontaneous
  Country: US (occurrence: None)
  Receive Date: 20120323
  Receipt Date: 20130305
  Transmission Date: 20141002
  Serious: Yes (Hospitalization, Other)
  Sender: FDA-Public Use
  Company Number: 163-21880-11033623

PATIENT
  Age: 65 Year
  Sex: Female
  Weight: 54.43 kg

DRUGS (4)
  1. REVLIMID [Suspect]
     Indication: PLASMA CELL MYELOMA
     Dosage: 25 MG, 21 DAYS OUT OF 28, PO
     Route: 048
     Dates: start: 20110201, end: 20110207
  2. ASA (ACETYLSALICYLIC ACID) [Concomitant]
  3. XANAX [Concomitant]
  4. VITAMINS [Concomitant]

REACTIONS (4)
  - Syncope [None]
  - Dizziness [None]
  - Anaemia [None]
  - Renal failure [None]
